FAERS Safety Report 18914716 (Version 1)
Quarter: 2021Q1

REPORT INFORMATION
  Report Type: Report from Study
  Country: BR (occurrence: BR)
  Receive Date: 20210219
  Receipt Date: 20210219
  Transmission Date: 20210420
  Serious: Yes (Other)
  Sender: FDA-Public Use
  Company Number: NVSC2021BR033353

PATIENT
  Sex: Female

DRUGS (1)
  1. COSENTYX [Suspect]
     Active Substance: SECUKINUMAB
     Indication: PSORIATIC ARTHROPATHY
     Dosage: UNK, QMO
     Route: 065
     Dates: start: 20201019

REACTIONS (7)
  - Gait disturbance [Unknown]
  - Arthralgia [Unknown]
  - Drug ineffective [Unknown]
  - Talipes [Unknown]
  - Pain [Unknown]
  - Psoriasis [Recovered/Resolved]
  - Ankle deformity [Unknown]
